FAERS Safety Report 15507641 (Version 2)
Quarter: 2018Q4

REPORT INFORMATION
  Report Type: Spontaneous
  Country: US (occurrence: US)
  Receive Date: 20181016
  Receipt Date: 20181029
  Transmission Date: 20190205
  Serious: No
  Sender: FDA-Public Use
  Company Number: US-SA-2016SA158891

PATIENT
  Age: 62 Year
  Sex: Female

DRUGS (9)
  1. LEVEMIR [Concomitant]
     Active Substance: INSULIN DETEMIR
     Dosage: UNK
  2. APIDRA [Suspect]
     Active Substance: INSULIN GLULISINE
     Indication: TYPE 1 DIABETES MELLITUS
     Dosage: UNK UNK,UNK
     Route: 065
  3. APIDRA [Suspect]
     Active Substance: INSULIN GLULISINE
     Dosage: UNK UNK,BID
     Route: 065
  4. APIDRA [Suspect]
     Active Substance: INSULIN GLULISINE
     Dosage: UNK UNK,BID
     Route: 065
  5. APIDRA [Suspect]
     Active Substance: INSULIN GLULISINE
     Dosage: 10 DF,UNK
     Route: 065
  6. APIDRA [Suspect]
     Active Substance: INSULIN GLULISINE
     Dosage: UNK, FREQUENTLY
  7. APIDRA [Suspect]
     Active Substance: INSULIN GLULISINE
     Dosage: 10 DF,UNK
     Route: 065
  8. VICTOZA [Concomitant]
     Active Substance: LIRAGLUTIDE
     Dosage: UNK
  9. APIDRA [Suspect]
     Active Substance: INSULIN GLULISINE
     Dosage: UNK UNK,UNK
     Route: 065

REACTIONS (2)
  - Drug ineffective [Unknown]
  - Blood glucose increased [Not Recovered/Not Resolved]
